FAERS Safety Report 5830847-6 (Version None)
Quarter: 2008Q3

REPORT INFORMATION
  Report Type: 
  Country: None (occurrence: None)
  Receive Date: 20080801
  Receipt Date: 20071231
  Transmission Date: 20090109
  Serious: Yes (Death, Other)
  Sender: FDA-Public Use
  Company Number: US-BRISTOL-MYERS SQUIBB COMPANY-14027775

PATIENT

DRUGS (1)
  1. COUMADIN [Suspect]

REACTIONS (2)
  - DEATH [None]
  - HAEMORRHAGE [None]
